FAERS Safety Report 8430997-4 (Version None)
Quarter: 2012Q2

REPORT INFORMATION
  Report Type: 
  Country: None (occurrence: None)
  Receive Date: 20120612
  Receipt Date: 20120529
  Transmission Date: 20120825
  Serious: Yes (Hospitalization, Other)
  Sender: FDA-Public Use
  Company Number: US-MYLANLABS-2008AL010503

PATIENT
  Age: 73 Year
  Sex: Male
  Weight: 94.8 kg

DRUGS (98)
  1. SPIRONOLACTONE [Concomitant]
  2. LISINOPRIL [Concomitant]
  3. COUMADIN [Concomitant]
  4. SPIRIVA [Concomitant]
  5. CARDIZEM [Concomitant]
  6. CIPROFLOXACIN HCL [Concomitant]
  7. UROCIT-K [Concomitant]
     Indication: NEPHROLITHIASIS
  8. MECLIZINE [Concomitant]
  9. NITROGLYCERIN [Concomitant]
  10. TIAZAC [Concomitant]
  11. POTASSIUM CITRATE [Concomitant]
  12. LORTAB [Concomitant]
     Dosage: 5MG/500MG
  13. NORCO [Concomitant]
  14. IMDUR [Concomitant]
  15. CLOPIDOGREL [Concomitant]
  16. ISOSORBIDE DINITRATE [Concomitant]
  17. NIASPAN [Concomitant]
  18. EUCERIN [Concomitant]
  19. FLOXIN /00239102/ [Concomitant]
  20. XYLOCAINE VISCOUS [Concomitant]
  21. METOPROLOL [Concomitant]
  22. DOPAMINE HCL [Concomitant]
  23. CARDIZEM LA [Concomitant]
  24. FOLIC ACID [Concomitant]
  25. TOPROL-XL [Concomitant]
  26. KLOR-CON [Concomitant]
  27. LORAZEPAM [Concomitant]
  28. FLUTICASONE FUROATE [Concomitant]
     Indication: RHINITIS ALLERGIC
     Route: 045
  29. AMOXICILLIN [Concomitant]
  30. BENZONATATE [Concomitant]
  31. PROVENTIL [Concomitant]
     Dosage: 2 PUFFS QID
  32. TRANDOLAPRIL [Concomitant]
  33. CARTIA XT [Concomitant]
  34. DARVOCET [Concomitant]
  35. HYDROCODONE [Concomitant]
  36. SODIUM CHLORIDE [Concomitant]
     Route: 045
  37. DIGOXIN [Suspect]
     Indication: ATRIAL FIBRILLATION
     Route: 048
     Dates: start: 19970101, end: 20090509
  38. DIGOXIN [Suspect]
     Indication: CARDIAC FAILURE CONGESTIVE
     Route: 048
     Dates: start: 19970101, end: 20090509
  39. DOXYCYCLINE [Concomitant]
  40. PACERONE [Concomitant]
  41. TIZANIDINE HYDROCHLORIDE [Concomitant]
  42. VIGAMOX [Concomitant]
  43. PREDNISONE [Concomitant]
  44. PANTOPRAZOLE [Concomitant]
  45. MACROBID [Concomitant]
  46. BETADINE /00080001/ [Concomitant]
  47. SYNVISC [Concomitant]
  48. TEQUIN [Concomitant]
  49. FLOMAX [Concomitant]
  50. COREG [Concomitant]
  51. NIACIN [Concomitant]
  52. PLAVIX [Concomitant]
     Dosage: 600MG X1 AND THEN 75MG QD FOR AT LEAST 6 MONTHS
  53. ASPIRIN [Concomitant]
  54. DOXAZOSIN MESYLATE [Concomitant]
  55. LOVENOX [Concomitant]
  56. TRAZODONE HCL [Concomitant]
     Indication: INSOMNIA
  57. BACILLUS FIRMUS [Concomitant]
     Indication: BLADDER CANCER
     Dosage: BACILLUS CALMETTE-GUERIN
  58. TRIMETHOPRIM + SULFAMETHOXAZOLE [Concomitant]
     Dosage: DOUBLE STRENGTH
  59. DUODERM /00504601/ [Concomitant]
  60. KEFLEX [Concomitant]
  61. CIPRO XR [Concomitant]
     Dosage: FOR 2 DAYS
  62. INTEGRILIN [Concomitant]
  63. PROTONIX [Concomitant]
  64. CEFTRIAXONE [Concomitant]
  65. SYMBICORT [Concomitant]
     Dosage: 80/4.5 2 PUFFS QD
  66. ACETAMINOPHEN AND HYDROCODONE BITARTRATE [Concomitant]
     Dosage: 5MG/500MG TID
  67. AMBIEN [Concomitant]
  68. LEVAQUIN [Concomitant]
     Dosage: FOR 5 DAYS
  69. TOPROL-XL [Concomitant]
  70. ATIVAN [Concomitant]
  71. ZANAFLEX [Concomitant]
  72. AMIODARONE HCL [Concomitant]
  73. LASIX [Concomitant]
  74. FERREX [Concomitant]
  75. XODOL [Concomitant]
     Indication: PAIN
     Dosage: 5MG/300MG BID PRN
  76. CARVEDILOL [Concomitant]
  77. OXYCODONE HCL [Concomitant]
  78. METOLAZONE [Concomitant]
  79. VIAGRA [Concomitant]
  80. MULTI-VITAMINS [Concomitant]
  81. NIACIN [Concomitant]
  82. CHONDROITIN W/GLUCOSAMINE /01430901/ [Concomitant]
  83. ANGIOMAX [Concomitant]
  84. TUSSIONEX /00004701/ [Concomitant]
  85. LANTUS [Concomitant]
  86. LIPITOR [Concomitant]
  87. AVELOX [Concomitant]
  88. AVODART [Concomitant]
  89. SONATA [Concomitant]
  90. GLYCOLAX [Concomitant]
  91. IMITREX [Concomitant]
  92. CEPHALEXIN [Concomitant]
  93. ACETAMINOPHEN [Concomitant]
  94. VITAMIN TAB [Concomitant]
  95. CORTISONE ACETATE [Concomitant]
     Dosage: INJECTIONS TO BOTH KNEES
  96. STEROIDS [Concomitant]
     Indication: BACK PAIN
     Dosage: EPIDURAL STEROID INJECTIONS FOR BACK PAIN
  97. CARDURA [Concomitant]
  98. MIRALAX /00754501/ [Concomitant]

REACTIONS (186)
  - ANHEDONIA [None]
  - RESPIRATORY TRACT CONGESTION [None]
  - BLOOD PRESSURE INCREASED [None]
  - HEART RATE IRREGULAR [None]
  - INSOMNIA [None]
  - ANAEMIA [None]
  - GASTRITIS EROSIVE [None]
  - BACK PAIN [None]
  - ABDOMINAL DISCOMFORT [None]
  - CONTUSION [None]
  - ARTHROPATHY [None]
  - CORONARY ARTERY OCCLUSION [None]
  - NON-CARDIAC CHEST PAIN [None]
  - DYSPNOEA PAROXYSMAL NOCTURNAL [None]
  - FLUID OVERLOAD [None]
  - FEELING HOT [None]
  - SUPRAVENTRICULAR TACHYCARDIA [None]
  - COAGULOPATHY [None]
  - ORTHOSTATIC INTOLERANCE [None]
  - HYPOTENSION [None]
  - SINUS CONGESTION [None]
  - RHINITIS ALLERGIC [None]
  - HYPERAESTHESIA [None]
  - PERICARDIAL EFFUSION [None]
  - OSTEOPENIA [None]
  - ANGIOPLASTY [None]
  - JOINT DISLOCATION [None]
  - DIZZINESS [None]
  - VISION BLURRED [None]
  - CHEST PAIN [None]
  - INJURY [None]
  - ILL-DEFINED DISORDER [None]
  - ASTHENIA [None]
  - HYPERTENSION [None]
  - RHINORRHOEA [None]
  - SLEEP APNOEA SYNDROME [None]
  - CARDIOMEGALY [None]
  - MELAENA [None]
  - CATHETERISATION CARDIAC [None]
  - THROMBOSIS [None]
  - ARTERIOSCLEROSIS CORONARY ARTERY [None]
  - VENOUS INSUFFICIENCY [None]
  - ECCHYMOSIS [None]
  - FLANK PAIN [None]
  - MICTURITION URGENCY [None]
  - RADICULOPATHY [None]
  - CATARACT OPERATION [None]
  - GASTROINTESTINAL HAEMORRHAGE [None]
  - DEHYDRATION [None]
  - INHIBITORY DRUG INTERACTION [None]
  - PURULENT DISCHARGE [None]
  - SPINAL OSTEOARTHRITIS [None]
  - URINE ANALYSIS ABNORMAL [None]
  - INVESTIGATION ABNORMAL [None]
  - WHEEZING [None]
  - PAIN [None]
  - LOSS OF EMPLOYMENT [None]
  - COUGH [None]
  - CORONARY ARTERY DISEASE [None]
  - DYSPNOEA EXERTIONAL [None]
  - ORTHOSTATIC HYPOTENSION [None]
  - PAIN IN EXTREMITY [None]
  - KNEE DEFORMITY [None]
  - MYOFASCIAL PAIN SYNDROME [None]
  - NERVE ROOT INJURY [None]
  - INTERMITTENT CLAUDICATION [None]
  - ANGINA UNSTABLE [None]
  - SINUSITIS [None]
  - PYREXIA [None]
  - ELECTROCARDIOGRAM ABNORMAL [None]
  - TESTICULAR DISORDER [None]
  - HAEMATOMA [None]
  - URETHRAL OBSTRUCTION [None]
  - RECTAL POLYP [None]
  - LUNG INFILTRATION [None]
  - ECONOMIC PROBLEM [None]
  - VISUAL IMPAIRMENT [None]
  - OROPHARYNGEAL PAIN [None]
  - CHRONIC OBSTRUCTIVE PULMONARY DISEASE [None]
  - ANAEMIA MEGALOBLASTIC [None]
  - DELIRIUM [None]
  - VENTRICULAR TACHYCARDIA [None]
  - CONVULSION [None]
  - PRESYNCOPE [None]
  - NEPHROLITHIASIS [None]
  - CARDIAC VALVE DISEASE [None]
  - LEFT VENTRICULAR DYSFUNCTION [None]
  - STENT PLACEMENT [None]
  - ESSENTIAL HYPERTENSION [None]
  - TREATMENT NONCOMPLIANCE [None]
  - HYPOPHAGIA [None]
  - MUSCULOSKELETAL CHEST PAIN [None]
  - ABDOMINAL PAIN [None]
  - BRONCHITIS [None]
  - SNORING [None]
  - UPPER-AIRWAY COUGH SYNDROME [None]
  - COLONIC POLYP [None]
  - PROSTATOMEGALY [None]
  - CONDUCTION DISORDER [None]
  - CEREBROVASCULAR ACCIDENT [None]
  - PULMONARY FIBROSIS [None]
  - HYPOXIA [None]
  - NAUSEA [None]
  - TOXICITY TO VARIOUS AGENTS [None]
  - JUGULAR VEIN DISTENSION [None]
  - TACHYCARDIA [None]
  - HAEMATURIA [None]
  - FACET JOINT SYNDROME [None]
  - PULMONARY HYPERTENSION [None]
  - INTERVERTEBRAL DISC DISORDER [None]
  - MUSCULOSKELETAL PAIN [None]
  - HEAD INJURY [None]
  - ISCHAEMIC CARDIOMYOPATHY [None]
  - DRUG LEVEL ABOVE THERAPEUTIC [None]
  - DIARRHOEA [None]
  - SINUS HEADACHE [None]
  - AGITATION [None]
  - MUSCULAR WEAKNESS [None]
  - BLOODY DISCHARGE [None]
  - HAEMORRHOIDS [None]
  - VENTRICULAR HYPOKINESIA [None]
  - CARDIAC MURMUR [None]
  - BLADDER INJURY [None]
  - ECHOCARDIOGRAM ABNORMAL [None]
  - VERTIGO [None]
  - SOCIAL AVOIDANT BEHAVIOUR [None]
  - DYSLIPIDAEMIA [None]
  - CARDIOMYOPATHY [None]
  - CARDIAC FAILURE CONGESTIVE [None]
  - TRICUSPID VALVE INCOMPETENCE [None]
  - OEDEMA PERIPHERAL [None]
  - OBESITY [None]
  - IMPAIRED HEALING [None]
  - WOUND [None]
  - ACUTE CORONARY SYNDROME [None]
  - DIZZINESS POSTURAL [None]
  - HYPERCHOLESTEROLAEMIA [None]
  - CATARACT [None]
  - INTRAOCULAR LENS IMPLANT [None]
  - ORTHOPNOEA [None]
  - FRACTURE [None]
  - SINUS DISORDER [None]
  - LUMBAR SPINAL STENOSIS [None]
  - CYSTITIS [None]
  - DECREASED INTEREST [None]
  - ATRIAL FIBRILLATION [None]
  - BREATH SOUNDS ABNORMAL [None]
  - PNEUMONIA [None]
  - DIVERTICULUM [None]
  - RECTAL HAEMORRHAGE [None]
  - IMPLANTABLE DEFIBRILLATOR INSERTION [None]
  - ANGINA PECTORIS [None]
  - DYSURIA [None]
  - OSTEOARTHRITIS [None]
  - FALL [None]
  - ARTHRALGIA [None]
  - PLEURAL EFFUSION [None]
  - OSTEOPOROSIS [None]
  - ARRHYTHMIA [None]
  - LABORATORY TEST ABNORMAL [None]
  - NEURALGIA [None]
  - BONE PAIN [None]
  - RETCHING [None]
  - XANTHOPSIA [None]
  - PRODUCTIVE COUGH [None]
  - SPONDYLOLISTHESIS [None]
  - LIGAMENT DISORDER [None]
  - VENTRICULAR DYSFUNCTION [None]
  - RENAL FAILURE ACUTE [None]
  - EMOTIONAL DISTRESS [None]
  - DYSPNOEA [None]
  - CHEST DISCOMFORT [None]
  - HEART RATE INCREASED [None]
  - EJECTION FRACTION DECREASED [None]
  - CARDIOVERSION [None]
  - PALPITATIONS [None]
  - SKIN ULCER [None]
  - BALANCE DISORDER [None]
  - FATIGUE [None]
  - ABNORMAL FAECES [None]
  - MIGRAINE [None]
  - MENTAL STATUS CHANGES [None]
  - INCREASED UPPER AIRWAY SECRETION [None]
  - EXOSTOSIS [None]
  - DILATATION ATRIAL [None]
  - CALCULUS URINARY [None]
